FAERS Safety Report 10216353 (Version 1)
Quarter: 2014Q2

REPORT INFORMATION
  Report Type: Spontaneous
  Country: FR (occurrence: FR)
  Receive Date: 20140604
  Receipt Date: 20140604
  Transmission Date: 20141212
  Serious: Yes (Hospitalization)
  Sender: FDA-Public Use
  Company Number: FR-JNJFOC-20140516618

PATIENT
  Age: 11 Year
  Sex: Male
  Weight: 32 kg

DRUGS (2)
  1. RISPERDAL [Suspect]
     Indication: ANXIETY DISORDER
     Route: 048
     Dates: start: 20130902
  2. ZOLOFT [Suspect]
     Indication: ANXIETY DISORDER
     Route: 048
     Dates: start: 201107

REACTIONS (4)
  - Anxiety [Recovered/Resolved]
  - Obsessive-compulsive disorder [Recovered/Resolved]
  - Anxiety [Recovered/Resolved]
  - Off label use [Unknown]
